FAERS Safety Report 7261684-6 (Version None)
Quarter: 2011Q1

REPORT INFORMATION
  Report Type: 
  Country: None (occurrence: None)
  Receive Date: 20110124
  Receipt Date: 20110124
  Transmission Date: 20110831
  Serious: Yes (Other)
  Sender: FDA-Public Use
  Company Number: None

PATIENT
  Age: 43 Year
  Sex: Female
  Weight: 72.5755 kg

DRUGS (1)
  1. TRIAD ALCHOL SWABS TRIAD [Suspect]
     Indication: MULTIPLE SCLEROSIS
     Dates: start: 20100426, end: 20110115

REACTIONS (6)
  - PAIN [None]
  - MALAISE [None]
  - NONSPECIFIC REACTION [None]
  - PRURITUS [None]
  - INFLUENZA LIKE ILLNESS [None]
  - URTICARIA [None]
